FAERS Safety Report 5020784-1 (Version None)
Quarter: 2006Q2

REPORT INFORMATION
  Report Type: 
  Country: None (occurrence: None)
  Receive Date: 20060608
  Receipt Date: 20060529
  Transmission Date: 20061013
  Serious: Yes (Other)
  Sender: FDA-Public Use
  Company Number: PHBS2006IL07911

PATIENT
  Age: 9 Year
  Sex: Male

DRUGS (3)
  1. TEGRETOL [Suspect]
     Indication: WILLIAMS SYNDROME
     Dosage: 100 MG, BID
     Route: 048
     Dates: start: 20060501
  2. TEGRETOL [Suspect]
     Dosage: 50 MG, BID
     Route: 048
  3. RITALIN [Concomitant]
     Indication: ATTENTION DEFICIT/HYPERACTIVITY DISORDER
     Dosage: 10 MG, BID
     Route: 065

REACTIONS (4)
  - AGGRESSION [None]
  - DYSKINESIA [None]
  - PSYCHOMOTOR HYPERACTIVITY [None]
  - RESTLESSNESS [None]
